FAERS Safety Report 23647473 (Version 1)
Quarter: 2024Q1

REPORT INFORMATION
  Report Type: Spontaneous
  Country: NL (occurrence: NL)
  Receive Date: 20240319
  Receipt Date: 20240319
  Transmission Date: 20240410
  Serious: Yes (Hospitalization)
  Sender: FDA-Public Use
  Company Number: None

PATIENT
  Age: 55 Year
  Sex: Male
  Weight: 80 kg

DRUGS (3)
  1. PEGINTERFERON ALFA-2A [Suspect]
     Active Substance: PEGINTERFERON ALFA-2A
     Indication: Essential thrombocythaemia
     Dosage: 1 DOSAGE FORM EVERY 3 WEEK(S) 1X PER 3WEKEN
     Dates: start: 20160101, end: 20231227
  2. NOVAVAX COVID-19 VACCINE, ADJUVANTED [Suspect]
     Active Substance: NVX-COV2373
     Indication: COVID-19 immunisation
     Dosage: 1 DOSAGE FORM DOSE 3 OR MORE
     Dates: start: 20231214
  3. CARBASALAATCALCIUM POEDER 100MG [Concomitant]
     Dosage: 100 MILLIGRAM ZAKJE (POEDER), 100 MG (MILLIGRAM)

REACTIONS (4)
  - Pericarditis [Recovering/Resolving]
  - Tachycardia [Recovering/Resolving]
  - Atrial fibrillation [Recovering/Resolving]
  - Dyspnoea [Recovering/Resolving]

NARRATIVE: CASE EVENT DATE: 20231216
